FAERS Safety Report 9913150 (Version 1)
Quarter: 2014Q1

REPORT INFORMATION
  Report Type: Spontaneous
  Country: US (occurrence: None)
  Receive Date: 20140218
  Receipt Date: 20140218
  Transmission Date: 20141002
  Serious: No
  Sender: FDA-Public Use
  Company Number: None

PATIENT
  Age: 65 Year
  Sex: Male
  Weight: 66.68 kg

DRUGS (7)
  1. AMITIZA [Suspect]
     Indication: CONSTIPATION
     Dosage: 24 MCG?PER DAY PLUS {180}?2 DAILY?BY MOUTH
     Route: 048
  2. FLORINEF [Concomitant]
  3. TOPROL [Concomitant]
  4. XARELTO [Concomitant]
  5. MIRALAX [Concomitant]
  6. RESTORIL [Concomitant]
  7. VITAMIN D [Concomitant]

REACTIONS (2)
  - Abdominal pain [None]
  - Abdominal distension [None]
